FAERS Safety Report 16755789 (Version 1)
Quarter: 2019Q3

REPORT INFORMATION
  Report Type: Spontaneous
  Country: US (occurrence: US)
  Receive Date: 20190829
  Receipt Date: 20190829
  Transmission Date: 20191005
  Serious: No
  Sender: FDA-Public Use
  Company Number: US-009507513-1908USA011221

PATIENT
  Sex: Female

DRUGS (14)
  1. CLARITIN [Concomitant]
     Active Substance: LORATADINE
  2. LEVOTHYROXINE SODIUM. [Concomitant]
     Active Substance: LEVOTHYROXINE SODIUM
  3. EPIPEN [Concomitant]
     Active Substance: EPINEPHRINE
  4. LISINOPRIL. [Concomitant]
     Active Substance: LISINOPRIL
  5. COLAZAL [Concomitant]
     Active Substance: BALSALAZIDE DISODIUM
  6. POTASSIUM CHLORIDE. [Concomitant]
     Active Substance: POTASSIUM CHLORIDE
  7. PROAIR HFA [Concomitant]
     Active Substance: ALBUTEROL SULFATE
  8. CYANOCOBALAMIN. [Concomitant]
     Active Substance: CYANOCOBALAMIN
  9. DULERA [Suspect]
     Active Substance: FORMOTEROL FUMARATE DIHYDRATE\MOMETASONE FUROATE
  10. NASONEX [Concomitant]
     Active Substance: MOMETASONE FUROATE
  11. LASIX [Concomitant]
     Active Substance: FUROSEMIDE
  12. ASPIR-81 [Concomitant]
     Active Substance: ASPIRIN
  13. NAC [Concomitant]
     Active Substance: ACETYLCYSTEINE
  14. ASTELIN [Concomitant]
     Active Substance: AZELASTINE HYDROCHLORIDE

REACTIONS (1)
  - Treatment failure [Unknown]
